FAERS Safety Report 6638444-X (Version None)
Quarter: 2010Q1

REPORT INFORMATION
  Report Type: 
  Country: None (occurrence: None)
  Receive Date: 20100317
  Receipt Date: 20100303
  Transmission Date: 20100710
  Serious: Yes (Hospitalization)
  Sender: FDA-Public Use
  Company Number: FR-CELGENEUS-056-C5013-10011949

PATIENT
  Sex: Male
  Weight: 70.5 kg

DRUGS (12)
  1. THALIDOMIDE [Suspect]
     Indication: MULTIPLE MYELOMA
     Route: 048
     Dates: start: 20091211, end: 20100122
  2. THALIDOMIDE [Suspect]
     Route: 048
     Dates: start: 20090326
  3. PREDNISONE [Suspect]
     Indication: MULTIPLE MYELOMA
     Route: 065
     Dates: start: 20091211, end: 20100122
  4. PREDNISONE [Suspect]
     Route: 065
     Dates: start: 20090326
  5. MELPHALAN HYDROCHLORIDE [Suspect]
     Indication: MULTIPLE MYELOMA
     Route: 065
     Dates: start: 20091211, end: 20100122
  6. MELPHALAN HYDROCHLORIDE [Suspect]
     Route: 065
     Dates: start: 20090326
  7. ZOPICLONE [Concomitant]
     Route: 048
     Dates: start: 20090115
  8. ASPEGIC 1000 [Concomitant]
     Indication: THROMBOSIS PROPHYLAXIS
     Route: 048
     Dates: start: 20090625
  9. MIANSERINE [Concomitant]
     Route: 048
     Dates: start: 20090115
  10. SERESTA [Concomitant]
     Route: 048
     Dates: start: 20090115
  11. FORLAX [Concomitant]
     Indication: CONSTIPATION
     Route: 048
     Dates: start: 20091030
  12. DEPAKOTE [Concomitant]
     Route: 048
     Dates: start: 20090115

REACTIONS (4)
  - KERATITIS HERPETIC [None]
  - NO THERAPEUTIC RESPONSE [None]
  - PLASMACYTOMA [None]
  - RETRO-ORBITAL NEOPLASM [None]
